FAERS Safety Report 8460141-9 (Version None)
Quarter: 2012Q2

REPORT INFORMATION
  Report Type: 
  Country: None (occurrence: None)
  Receive Date: 20120323
  Receipt Date: 20111012
  Transmission Date: 20120825
  Serious: Yes (Hospitalization)
  Sender: FDA-Public Use
  Company Number: 163-21880-11101582

PATIENT
  Age: 62 Year
  Sex: Male

DRUGS (4)
  1. LENALIDOMIDE [Suspect]
     Indication: MULTIPLE MYELOMA
     Dosage: 25 MG, QD X 21/28 DAYS, PO
     Route: 048
     Dates: start: 20110701
  2. MVI (MVII) [Concomitant]
  3. VYTORIN [Concomitant]
  4. DOCUSATE (DOCUSATE) [Concomitant]

REACTIONS (1)
  - PULMONARY EMBOLISM [None]
